FAERS Safety Report 5043826-6 (Version None)
Quarter: 2006Q2

REPORT INFORMATION
  Report Type: 
  Country: None (occurrence: None)
  Receive Date: 20060601
  Receipt Date: 20060412
  Transmission Date: 20061013
  Serious: No
  Sender: FDA-Public Use
  Company Number: US200602004327

PATIENT
  Age: 19 Year
  Sex: Female
  Weight: 74.8 kg

DRUGS (3)
  1. CYMBALTA [Suspect]
     Indication: BACK PAIN
     Dosage: SEE IMAGE
     Dates: end: 20060301
  2. CYMBALTA [Suspect]
     Indication: BACK PAIN
     Dosage: SEE IMAGE
  3. CYMBALTA [Suspect]
     Indication: BACK PAIN
     Dosage: SEE IMAGE
     Dates: start: 20051201

REACTIONS (3)
  - DRUG WITHDRAWAL SYNDROME [None]
  - OBSESSIVE-COMPULSIVE DISORDER [None]
  - TIC [None]
